FAERS Safety Report 21965281 (Version 2)
Quarter: 2023Q1

REPORT INFORMATION
  Report Type: Spontaneous
  Country: US (occurrence: None)
  Receive Date: 20230208
  Receipt Date: 20230214
  Transmission Date: 20230418
  Serious: Yes (Death)
  Sender: FDA-Public Use
  Company Number: US-ROCHE-3280471

PATIENT
  Age: 89 Year
  Sex: Female

DRUGS (1)
  1. XELODA [Suspect]
     Active Substance: CAPECITABINE
     Indication: Colon cancer
     Dosage: PATIENT TOOK A ^FULL DOSE^ ON 01-JAN-2022 AND ^PART OF A DOSE^ ON 02-JAN-2023,?PART OF DOSE NOT CONS
     Route: 065
     Dates: start: 20220101, end: 20230102

REACTIONS (5)
  - Death [Fatal]
  - Dry skin [Unknown]
  - Neuropathy peripheral [Unknown]
  - Asthenia [Unknown]
  - Hand-foot-and-mouth disease [Unknown]

NARRATIVE: CASE EVENT DATE: 20230206
